FAERS Safety Report 11102622 (Version 1)
Quarter: 2015Q2

REPORT INFORMATION
  Report Type: Spontaneous
  Country: CH (occurrence: CH)
  Receive Date: 20150511
  Receipt Date: 20150511
  Transmission Date: 20150821
  Serious: Yes (Other)
  Sender: FDA-Public Use
  Company Number: CH-INCYTE CORPORATION-2015IN002017

PATIENT
  Sex: Male

DRUGS (1)
  1. JAKAFI [Suspect]
     Active Substance: RUXOLITINIB
     Indication: MYELOFIBROSIS
     Dosage: 20 MG, BID (2X20MG)
     Route: 065

REACTIONS (2)
  - Metastatic squamous cell carcinoma [Unknown]
  - Second primary malignancy [Unknown]
